FAERS Safety Report 6173921-X (Version None)
Quarter: 2009Q2

REPORT INFORMATION
  Report Type: 
  Country: None (occurrence: None)
  Receive Date: 20090429
  Receipt Date: 20090429
  Transmission Date: 20091009
  Serious: Yes (Other)
  Sender: FDA-Public Use
  Company Number: None

PATIENT
  Sex: Male
  Weight: 86.1834 kg

DRUGS (1)
  1. ANDRODERM [Suspect]
     Dosage: 5MG/DAY DAILY TRANSDERMAL
     Route: 062
     Dates: start: 20090427, end: 20090428

REACTIONS (3)
  - APPLICATION SITE IRRITATION [None]
  - APPLICATION SITE RASH [None]
  - APPLICATION SITE VESICLES [None]
